FAERS Safety Report 11676793 (Version 1)
Quarter: 2015Q4

REPORT INFORMATION
  Report Type: Spontaneous
  Country: US (occurrence: US)
  Receive Date: 20151027
  Receipt Date: 20151027
  Transmission Date: 20160304
  Serious: No
  Sender: FDA-Public Use
  Company Number: US-ELI_LILLY_AND_COMPANY-US201009008282

PATIENT
  Sex: Female

DRUGS (6)
  1. CALCIUM W/VITAMIN D /00188401/ [Concomitant]
  2. MAGNESIUM [Concomitant]
     Active Substance: MAGNESIUM
  3. FORTEO [Suspect]
     Active Substance: TERIPARATIDE
     Indication: OSTEOPOROSIS
     Dosage: 20 UG, DAILY (1/D)
     Dates: start: 20100428, end: 20100915
  4. PREMARIN [Concomitant]
     Active Substance: ESTROGENS, CONJUGATED
  5. FORTEO [Suspect]
     Active Substance: TERIPARATIDE
     Dosage: 20 UG, DAILY (1/D)
     Dates: start: 20100928
  6. MULTIVITAMIN [Concomitant]
     Active Substance: VITAMINS

REACTIONS (5)
  - Diarrhoea [Unknown]
  - Fall [Recovering/Resolving]
  - Arthralgia [Unknown]
  - Nausea [Unknown]
  - Contusion [Recovering/Resolving]
